FAERS Safety Report 9854761 (Version 3)
Quarter: 2014Q3

REPORT INFORMATION
  Report Type: Spontaneous
  Country: US (occurrence: US)
  Receive Date: 20140130
  Receipt Date: 20140805
  Transmission Date: 20150326
  Serious: Yes (Other)
  Sender: FDA-Public Use
  Company Number: US-PFIZER INC-2014024659

PATIENT
  Age: 48 Year
  Sex: Female
  Weight: 82 kg

DRUGS (6)
  1. PROTONIX [Concomitant]
     Active Substance: PANTOPRAZOLE SODIUM
     Dosage: 40 MG, 2X/DAY
  2. ARICEPT [Concomitant]
     Active Substance: DONEPEZIL HYDROCHLORIDE
     Dosage: UNK
  3. BOSULIF [Suspect]
     Active Substance: BOSUTINIB MONOHYDRATE
     Indication: ESSENTIAL THROMBOCYTHAEMIA
     Dosage: 500 MG, 1X/DAY
     Route: 048
     Dates: start: 20140122
  4. BOSULIF [Suspect]
     Active Substance: BOSUTINIB MONOHYDRATE
     Indication: PORTAL VEIN THROMBOSIS
  5. BOSULIF [Suspect]
     Active Substance: BOSUTINIB MONOHYDRATE
     Indication: MYELOFIBROSIS
  6. CYTARABINE. [Concomitant]
     Active Substance: CYTARABINE
     Dosage: UNK

REACTIONS (10)
  - Abdominal pain upper [Unknown]
  - Somnolence [Unknown]
  - Nausea [Unknown]
  - Thinking abnormal [Unknown]
  - Platelet disorder [Unknown]
  - Vomiting [Unknown]
  - Haemoglobin abnormal [Unknown]
  - White blood cell count abnormal [Unknown]
  - Off label use [Unknown]
  - Asthenia [Unknown]

NARRATIVE: CASE EVENT DATE: 2014
